FAERS Safety Report 18378694 (Version 2)
Quarter: 2021Q1

REPORT INFORMATION
  Report Type: Report from Study
  Country: RO (occurrence: RO)
  Receive Date: 20201013
  Receipt Date: 20210203
  Transmission Date: 20210419
  Serious: Yes (Death, Other)
  Sender: FDA-Public Use
  Company Number: RO-GILEAD-2020-0496600

PATIENT
  Age: 53 Year
  Sex: Male

DRUGS (5)
  1. PLAQUENIL S [Concomitant]
     Active Substance: HYDROXYCHLOROQUINE SULFATE
  2. LEDIPASVIR/SOFOSBUVIR [Suspect]
     Active Substance: LEDIPASVIR\SOFOSBUVIR
     Indication: CHRONIC HEPATITIS C
     Dosage: 1 DOSAGE FORM, QD
     Route: 048
     Dates: start: 20200924, end: 20201003
  3. MEDROL [Concomitant]
     Active Substance: METHYLPREDNISOLONE
  4. KETONAL [KETOCONAZOLE] [Concomitant]
     Active Substance: KETOCONAZOLE
  5. CONTROLOC [Concomitant]
     Active Substance: PANTOPRAZOLE SODIUM

REACTIONS (8)
  - Abdominal pain upper [Not Recovered/Not Resolved]
  - Blood pressure abnormal [Fatal]
  - Sepsis [Fatal]
  - Hyperhidrosis [Not Recovered/Not Resolved]
  - Feeling hot [Fatal]
  - Contusion [Fatal]
  - Duodenal ulcer [Fatal]
  - Vomiting [Not Recovered/Not Resolved]

NARRATIVE: CASE EVENT DATE: 20200924
